FAERS Safety Report 7330393-7 (Version None)
Quarter: 2011Q1

REPORT INFORMATION
  Report Type: 
  Country: None (occurrence: None)
  Receive Date: 20110304
  Receipt Date: 20110222
  Transmission Date: 20110831
  Serious: No
  Sender: FDA-Public Use
  Company Number: US-BIOGENIDEC-2010BI006956

PATIENT
  Sex: Female

DRUGS (2)
  1. TYSABRI [Suspect]
     Indication: MULTIPLE SCLEROSIS
     Route: 042
     Dates: start: 20041221, end: 20050101
  2. TYSABRI [Suspect]
     Route: 042
     Dates: start: 20070809

REACTIONS (2)
  - DIZZINESS [None]
  - ANXIETY [None]
